FAERS Safety Report 21993224 (Version 1)
Quarter: 2023Q1

REPORT INFORMATION
  Report Type: Spontaneous
  Country: IT (occurrence: IT)
  Receive Date: 20230215
  Receipt Date: 20230215
  Transmission Date: 20230418
  Serious: Yes (Hospitalization)
  Sender: FDA-Public Use
  Company Number: None

PATIENT
  Age: 80 Year
  Sex: Female
  Weight: 72 kg

DRUGS (4)
  1. ATORVASTATIN [Suspect]
     Active Substance: ATORVASTATIN
     Indication: Hypercholesterolaemia
     Dosage: 80 MILLIGRAM DAILY; 80 MG/DAY
     Dates: start: 20221018, end: 20230102
  2. ASPIRIN [Concomitant]
     Active Substance: ASPIRIN
     Indication: Myocardial ischaemia
     Dosage: 1 CP/DAY
  3. PREDNISONE [Concomitant]
     Active Substance: PREDNISONE
     Indication: Chronic kidney disease
     Dosage: STARTED AT 50 MG/DAY, GRADUALLY TAPERED DOSE (CURRENT 12.5 MG/DAY)
  4. TICAGRELOR [Concomitant]
     Active Substance: TICAGRELOR
     Indication: Myocardial ischaemia
     Dosage: 180 MILLIGRAM DAILY; 90 MG B.I.D

REACTIONS (1)
  - Rhabdomyolysis [Recovering/Resolving]

NARRATIVE: CASE EVENT DATE: 20230101
